FAERS Safety Report 13025074 (Version 2)
Quarter: 2016Q4

REPORT INFORMATION
  Report Type: Report from Study
  Country: CH (occurrence: CH)
  Receive Date: 20161213
  Receipt Date: 20161227
  Transmission Date: 20170207
  Serious: Yes (Death, Other)
  Sender: FDA-Public Use
  Company Number: NO-ASTRAZENECA-2016SF29810

PATIENT
  Age: 52 Year
  Sex: Female
  Weight: 90 kg

DRUGS (3)
  1. PALBOCICLIB [Suspect]
     Active Substance: PALBOCICLIB
     Indication: BREAST CANCER METASTATIC
     Dosage: UNKNOWN
     Route: 048
     Dates: start: 20151014, end: 20160315
  2. FASLODEX [Suspect]
     Active Substance: FULVESTRANT
     Indication: BREAST CANCER METASTATIC
     Dosage: UNKNOWN
     Route: 030
     Dates: start: 20151229, end: 20160323
  3. ROCEPHIN [Concomitant]
     Active Substance: CEFTRIAXONE SODIUM
     Indication: ABDOMINAL INFECTION
     Route: 042
     Dates: start: 20160504, end: 20161104

REACTIONS (2)
  - Malignant neoplasm progression [Fatal]
  - Off label use [Unknown]

NARRATIVE: CASE EVENT DATE: 20161104
